FAERS Safety Report 12293703 (Version 6)
Quarter: 2016Q2

REPORT INFORMATION
  Report Type: Spontaneous
  Country: ES (occurrence: ES)
  Receive Date: 20160421
  Receipt Date: 20160621
  Transmission Date: 20160815
  Serious: Yes (Disabling)
  Sender: FDA-Public Use
  Company Number: ES-009507513-1604ESP009490

PATIENT
  Age: 68 Year
  Sex: Male

DRUGS (3)
  1. ONCOTICE [Suspect]
     Active Substance: BACILLUS CALMETTE-GUERIN SUBSTRAIN TICE LIVE ANTIGEN
     Indication: BLADDER CANCER
     Dosage: UNK, MONTHLY; STRENGH: 1-8 X 10^8 COLONY FORMING UNITS (CFU), ROUTE: INSTILLATION
     Route: 043
     Dates: start: 20150309, end: 2015
  2. ONCOTICE [Suspect]
     Active Substance: BACILLUS CALMETTE-GUERIN SUBSTRAIN TICE LIVE ANTIGEN
     Dosage: INDUCTION TREATMENT, WEEKLY; STRENGH: 1-8 X 10^8 COLONY FORMING UNITS (CFU), ROUTE: INSTILLATION
     Route: 043
     Dates: start: 20141229, end: 20141229
  3. ONCOTICE [Suspect]
     Active Substance: BACILLUS CALMETTE-GUERIN SUBSTRAIN TICE LIVE ANTIGEN
     Dosage: UNK, MONTHLY; STRENGH: 1-8 X 10^8 COLONY FORMING UNITS (CFU), ROUTE: INSTILLATION
     Route: 043
     Dates: start: 20151217, end: 201604

REACTIONS (3)
  - Sensory loss [Recovering/Resolving]
  - Paraesthesia [Recovering/Resolving]
  - Nervousness [Unknown]

NARRATIVE: CASE EVENT DATE: 20151217
